FAERS Safety Report 8102633-8 (Version None)
Quarter: 2012Q1

REPORT INFORMATION
  Report Type: 
  Country: None (occurrence: None)
  Receive Date: 20120126
  Receipt Date: 20120112
  Transmission Date: 20120608
  Serious: Yes (Death, Life-Threatening)
  Sender: FDA-Public Use
  Company Number: 2012S1000019

PATIENT
  Age: 4 Month
  Sex: Male

DRUGS (8)
  1. EPINEPHRINE [Concomitant]
  2. FENTANYL CITRATE [Concomitant]
  3. MILRINONE [Concomitant]
  4. DOPAMINE HCL [Concomitant]
  5. SODIUM BICARBONATE [Concomitant]
  6. LUNG SURFACTANTS [Concomitant]
  7. INOMAX [Suspect]
     Indication: PULMONARY HYPERTENSION
     Dosage: 20 PPM;CONT;INH
     Route: 055
     Dates: start: 20111227, end: 20120109
  8. VANCOMYCIN [Concomitant]

REACTIONS (3)
  - BRADYCARDIA [None]
  - OXYGEN SATURATION DECREASED [None]
  - DEVICE MALFUNCTION [None]
